FAERS Safety Report 8481895-1 (Version None)
Quarter: 2012Q2

REPORT INFORMATION
  Report Type: 
  Country: None (occurrence: None)
  Receive Date: 20120626
  Receipt Date: 20120626
  Transmission Date: 20120825
  Serious: No
  Sender: FDA-Public Use
  Company Number: None

PATIENT
  Age: 44 Year
  Sex: Female
  Weight: 50.8029 kg

DRUGS (1)
  1. DORYX [Suspect]
     Indication: ROSACEA
     Dosage: 150 MG 1 Q DAY PO
     Route: 048
     Dates: start: 20120625, end: 20120625

REACTIONS (5)
  - DYSPNOEA [None]
  - ANXIETY [None]
  - DYSPHAGIA [None]
  - DIZZINESS [None]
  - THROAT TIGHTNESS [None]
